FAERS Safety Report 10044397 (Version 1)
Quarter: 2014Q1

REPORT INFORMATION
  Report Type: Spontaneous
  Country: US (occurrence: None)
  Receive Date: 20140306
  Receipt Date: 20140306
  Transmission Date: 20141002
  Serious: Yes (Hospitalization, Other)
  Sender: FDA-Public Use
  Company Number: 163-21880-13070299

PATIENT
  Age: 76 Year
  Sex: Male

DRUGS (12)
  1. REVLIMID (LENALIDOMIDE) (5 MILLIGRAM, CAPSULES) [Suspect]
     Indication: MYELODYSPLASTIC SYNDROME
     Route: 048
     Dates: start: 201306
  2. ASPIRIN ADULT (ACETYLSALICYLIC ACID) (CHEWABLE TABLET) [Concomitant]
  3. RISPERDAL [Concomitant]
  4. COMPLETE MULTIVITAMIN (MULTIVITAMIN) (TABLETS) [Concomitant]
  5. SINGULAIR (MONTELUKAST SODIUM) (TABLETS) [Concomitant]
  6. COREG (CARVEDILOL) (TABLETS) [Concomitant]
  7. ZOLOFT (SERTRALINE HYDROCHLORIDE) (TABLETS) [Concomitant]
  8. PREVACID (LANSOPRAZOLE) (CAPSULES) [Concomitant]
  9. TRILEPTAL (OXCARBAZEPINE) (TABLETS) [Concomitant]
  10. SIMVASTATIN (SIMVASTATIN) (TABLETS) [Concomitant]
  11. LOVAZA (OMEGA-3 MARINE TRIGLYCERIDES) (CAPSULES) [Concomitant]
  12. PROBIOTIC + ACIDOPHILUS (LACTOBACILLUS) ACIDOPHILUS) (CAPSULES) [Concomitant]

REACTIONS (3)
  - Pneumonia [None]
  - Clostridium difficile infection [None]
  - Tooth disorder [None]
